FAERS Safety Report 4462081-9 (Version None)
Quarter: 2004Q3

REPORT INFORMATION
  Report Type: 
  Country: None (occurrence: None)
  Receive Date: 20040924
  Receipt Date: 20040917
  Transmission Date: 20050211
  Serious: Yes (Other)
  Sender: FDA-Public Use
  Company Number: A03200403196

PATIENT

DRUGS (1)
  1. ELOXATIN [Suspect]

REACTIONS (1)
  - HEPATIC CIRRHOSIS [None]
